FAERS Safety Report 16111328 (Version 2)
Quarter: 2019Q3

REPORT INFORMATION
  Report Type: Spontaneous
  Country: US (occurrence: ZA)
  Receive Date: 20190325
  Receipt Date: 20190909
  Transmission Date: 20191004
  Serious: Yes (Death, Hospitalization, Other)
  Sender: FDA-Public Use
  Company Number: US-SUNOVION-2019SUN001173

PATIENT
  Age: 60 Year
  Sex: Female

DRUGS (1)
  1. INDACATEROL AND GLYCOPYRROLATE [Suspect]
     Active Substance: GLYCOPYRROLATE\INDACATEROL MALEATE
     Indication: ASTHMA
     Dosage: 63 MG, QD
     Route: 065
     Dates: start: 201809, end: 201908

REACTIONS (3)
  - Cardiac failure [Unknown]
  - Lung disorder [Unknown]
  - Death [Fatal]

NARRATIVE: CASE EVENT DATE: 20190811
